FAERS Safety Report 12697825 (Version 1)
Quarter: 2016Q3

REPORT INFORMATION
  Report Type: Report from Study
  Country: DE (occurrence: DE)
  Receive Date: 20160830
  Receipt Date: 20160830
  Transmission Date: 20161109
  Serious: Yes (Other)
  Sender: FDA-Public Use
  Company Number: DE-TEVA-687916GER

PATIENT
  Age: 65 Year
  Sex: Female
  Weight: 51 kg

DRUGS (7)
  1. AMITRIPTYLIN [Concomitant]
     Active Substance: AMITRIPTYLINE
     Dosage: 10 MILLIGRAM DAILY;
     Dates: start: 20100101
  2. ABRAXANE [Suspect]
     Active Substance: PACLITAXEL
     Indication: BREAST CANCER FEMALE
     Dosage: LAST DOSE PRIOR TO SAE: 01-OCT-2013; ON DAY 1 AND 8 EVERY THREE WEEKS
     Route: 042
     Dates: start: 20130902
  3. DOCITON [Concomitant]
     Active Substance: PROPRANOLOL HYDROCHLORIDE
     Dosage: 240 MILLIGRAM DAILY;
     Dates: start: 19770101
  4. GEMCITABINE [Suspect]
     Active Substance: GEMCITABINE\GEMCITABINE HYDROCHLORIDE
     Indication: BREAST CANCER FEMALE
     Dosage: LAST DOSE PRIOR TO SAE: 01-OCT-2013;  ON DAY 1 AND 8 EVERY THREE WEEKS
     Route: 042
     Dates: start: 20130902
  5. STILNOX [Concomitant]
     Active Substance: ZOLPIDEM TARTRATE
     Dosage: 10 MILLIGRAM DAILY;
     Dates: start: 20131007
  6. EBRANTIL 30MG [Concomitant]
     Dates: start: 20131013
  7. ENALAPRIL 10MG [Concomitant]
     Active Substance: ENALAPRIL
     Dates: start: 20131011

REACTIONS (1)
  - Hospitalisation [Recovered/Resolved]

NARRATIVE: CASE EVENT DATE: 20131021
